FAERS Safety Report 21413553 (Version 4)
Quarter: 2023Q2

REPORT INFORMATION
  Report Type: Report from Study
  Country: US (occurrence: US)
  Receive Date: 20221006
  Receipt Date: 20230611
  Transmission Date: 20230721
  Serious: Yes (Hospitalization, Other)
  Sender: FDA-Public Use
  Company Number: US-ABBVIE-22K-163-4529069-00

PATIENT
  Age: 75 Year
  Sex: Female

DRUGS (3)
  1. HUMIRA [Suspect]
     Active Substance: ADALIMUMAB
     Indication: Crohn^s disease
     Dosage: CITRATE FREE
     Route: 058
  2. HUMIRA [Suspect]
     Active Substance: ADALIMUMAB
     Dosage: CITRATE FREE
     Route: 058
  3. HUMIRA [Suspect]
     Active Substance: ADALIMUMAB
     Dosage: CITRATE FREE
     Route: 058

REACTIONS (26)
  - Rectal ulcer haemorrhage [Recovering/Resolving]
  - Dysuria [Not Recovered/Not Resolved]
  - Blood pressure increased [Unknown]
  - Laryngitis [Recovering/Resolving]
  - Blood iron decreased [Unknown]
  - Stomatitis [Recovered/Resolved]
  - Mouth ulceration [Not Recovered/Not Resolved]
  - Cough [Recovering/Resolving]
  - Increased tendency to bruise [Unknown]
  - Chronic kidney disease [Unknown]
  - Influenza like illness [Not Recovered/Not Resolved]
  - Abdominal pain upper [Not Recovered/Not Resolved]
  - Oropharyngeal pain [Recovering/Resolving]
  - Pyrexia [Recovering/Resolving]
  - Proctalgia [Not Recovered/Not Resolved]
  - Pyrexia [Not Recovered/Not Resolved]
  - Epistaxis [Recovering/Resolving]
  - Mouth haemorrhage [Recovering/Resolving]
  - Weight decreased [Not Recovered/Not Resolved]
  - Haematochezia [Unknown]
  - Tongue coated [Unknown]
  - Toxic shock syndrome [Recovered/Resolved]
  - Secretion discharge [Unknown]
  - Pyrexia [Recovering/Resolving]
  - Oesophageal ulcer [Unknown]
  - Infection [Recovering/Resolving]

NARRATIVE: CASE EVENT DATE: 20220801
